FAERS Safety Report 7716545-2 (Version None)
Quarter: 2011Q3

REPORT INFORMATION
  Report Type: 
  Country: None (occurrence: None)
  Receive Date: 20110829
  Receipt Date: 20110824
  Transmission Date: 20111222
  Serious: No
  Sender: FDA-Public Use
  Company Number: US-ABBOTT-11P-163-0848281-00

PATIENT
  Sex: Male

DRUGS (2)
  1. UNKNOWN INHALER [Concomitant]
     Indication: ASTHMA
     Route: 055
  2. ANDROGEL [Suspect]
     Indication: PRODUCT USED FOR UNKNOWN INDICATION
     Dates: start: 20110811, end: 20110812

REACTIONS (5)
  - PRURITUS [None]
  - DYSPNOEA [None]
  - URTICARIA [None]
  - ASTHMA [None]
  - RASH [None]
